FAERS Safety Report 9057979 (Version 1)
Quarter: 2013Q1

REPORT INFORMATION
  Report Type: Spontaneous
  Country: CO (occurrence: CO)
  Receive Date: 20130211
  Receipt Date: 20130211
  Transmission Date: 20140127
  Serious: Yes (Hospitalization, Other)
  Sender: FDA-Public Use
  Company Number: CO-AMGEN-COLSP2012051931

PATIENT
  Age: 46 Year
  Sex: Female

DRUGS (11)
  1. ENBREL [Suspect]
     Indication: RHEUMATOID ARTHRITIS
     Dosage: 50 MG, WEEKLY
     Route: 058
     Dates: start: 2010, end: 201212
  2. METHOTREXATE [Concomitant]
     Indication: RHEUMATOID ARTHRITIS
     Dosage: 2.5 MG, WEEKLY
     Route: 048
     Dates: start: 20120730
  3. METHOTREXATE [Concomitant]
     Indication: RHEUMATOID ARTHRITIS
  4. PREDNISOLONE [Concomitant]
     Indication: RHEUMATOID ARTHRITIS
     Dosage: 5 MG, 2X/DAY
     Route: 048
     Dates: start: 2006
  5. BIO CALCIUM [Concomitant]
     Indication: RHEUMATOID ARTHRITIS
     Dosage: 1 UNK, 2X/DAY
     Route: 048
     Dates: start: 2006
  6. SALICYLAMIDE [Concomitant]
     Indication: RHEUMATOID ARTHRITIS
     Dosage: 250 MG, 2X/DAY
     Route: 048
     Dates: start: 2010
  7. CALCITRIOL [Concomitant]
     Indication: RHEUMATOID ARTHRITIS
     Dosage: UNK
     Route: 048
     Dates: start: 2006
  8. OMEPRAZOL                          /00661201/ [Concomitant]
     Indication: GASTRITIS
     Dosage: 20 MG, 2X/DAY
     Route: 048
     Dates: start: 2007
  9. ENALAPRIL [Concomitant]
     Indication: HYPERTENSION
     Dosage: 5 MG, 2X/DAY
     Route: 048
     Dates: start: 2008
  10. METOPROLOL [Concomitant]
     Dosage: 20 G, 2X/DAY
     Route: 048
     Dates: start: 2008
  11. CHLOROQUINE [Concomitant]
     Dosage: UNK

REACTIONS (9)
  - Cardio-respiratory arrest [Unknown]
  - Blindness [Unknown]
  - Deafness [Unknown]
  - Multiple injuries [Unknown]
  - Aphonia [Unknown]
  - Pneumonia [Unknown]
  - Breast mass [Recovered/Resolved]
  - Amnesia [Not Recovered/Not Resolved]
  - Disturbance in attention [Not Recovered/Not Resolved]
